FAERS Safety Report 23525475 (Version 1)
Quarter: 2024Q1

REPORT INFORMATION
  Report Type: Spontaneous
  Country: DE (occurrence: None)
  Receive Date: 20240215
  Receipt Date: 20240215
  Transmission Date: 20240409
  Serious: Yes (Other)
  Sender: FDA-Public Use
  Company Number: DE-ADIENNEP-2024AD000124

PATIENT
  Sex: Female

DRUGS (3)
  1. THIOTEPA [Suspect]
     Active Substance: THIOTEPA
     Indication: Autologous haematopoietic stem cell transplant
     Dosage: 300 MG/M2 I.V. ON DAY -4, -3, -2
     Route: 042
  2. CYCLOPHOSPHAMIDE [Suspect]
     Active Substance: CYCLOPHOSPHAMIDE
     Indication: Autologous haematopoietic stem cell transplant
     Dosage: 1.5 G/M2 ON DAY -4, -3, -2 (1.5G/M2)
     Route: 042
  3. METHOTREXATE [Suspect]
     Active Substance: METHOTREXATE
     Indication: Autologous haematopoietic stem cell transplant
     Dosage: 2 MG I. VENTR. ON DAY -4,-3,-2,-1

REACTIONS (3)
  - Venoocclusive liver disease [Recovered/Resolved]
  - Second primary malignancy [Unknown]
  - Glioma [Unknown]
